FAERS Safety Report 14917829 (Version 1)
Quarter: 2018Q2

REPORT INFORMATION
  Report Type: Spontaneous
  Country: US (occurrence: US)
  Receive Date: 20180521
  Receipt Date: 20180521
  Transmission Date: 20180711
  Serious: No
  Sender: FDA-Public Use
  Company Number: US-ACCORD-062985

PATIENT
  Age: 87 Year
  Sex: Female
  Weight: 78.02 kg

DRUGS (1)
  1. CAPECITABINE. [Suspect]
     Active Substance: CAPECITABINE
     Indication: NEOPLASM MALIGNANT
     Dosage: STRENGTH: 500 MG?3 PO QAM + 3 PO QPM
     Route: 048
     Dates: start: 2017

REACTIONS (1)
  - Skin discolouration [Unknown]
